FAERS Safety Report 6142819-5 (Version None)
Quarter: 2009Q1

REPORT INFORMATION
  Report Type: 
  Country: None (occurrence: None)
  Receive Date: 20090330
  Receipt Date: 20090130
  Transmission Date: 20090719
  Serious: Yes (Other)
  Sender: FDA-Public Use
  Company Number: OSCN-PR-0902S-0049

PATIENT
  Age: 58 Year
  Sex: Female

DRUGS (1)
  1. OMNISCAN [Suspect]
     Indication: DRUG USE FOR UNKNOWN INDICATION
     Dosage: 17 ML, SINGLE DOSE, I.V.
     Route: 042
     Dates: start: 20090130, end: 20090130

REACTIONS (1)
  - ANAPHYLACTOID REACTION [None]
